FAERS Safety Report 10812525 (Version 1)
Quarter: 2015Q1

REPORT INFORMATION
  Report Type: Report from Study
  Country: US (occurrence: US)
  Receive Date: 20150218
  Receipt Date: 20150218
  Transmission Date: 20150721
  Serious: Yes (Hospitalization, Other)
  Sender: FDA-Public Use
  Company Number: US-AMGEN-USASP2014022734

PATIENT
  Age: 63 Year
  Sex: Female

DRUGS (1)
  1. ENBREL [Suspect]
     Active Substance: ETANERCEPT
     Indication: RHEUMATOID ARTHRITIS
     Dosage: 25 MG, 2 TIMES/WK
     Route: 065
     Dates: start: 20140104

REACTIONS (8)
  - Bronchitis [Not Recovered/Not Resolved]
  - Pneumonia [Recovered/Resolved]
  - Cataract [Recovered/Resolved]
  - Arthropathy [Not Recovered/Not Resolved]
  - Speech disorder [Not Recovered/Not Resolved]
  - Decreased immune responsiveness [Unknown]
  - Malaise [Not Recovered/Not Resolved]
  - Mobility decreased [Unknown]

NARRATIVE: CASE EVENT DATE: 201402
